FAERS Safety Report 6992109-3 (Version None)
Quarter: 2010Q3

REPORT INFORMATION
  Report Type: 
  Country: None (occurrence: None)
  Receive Date: 20100917
  Receipt Date: 20100909
  Transmission Date: 20110219
  Serious: Yes (Hospitalization, Other)
  Sender: FDA-Public Use
  Company Number: US-ASTRAZENECA-2006UW07766

PATIENT
  Age: 14344 Day
  Sex: Female
  Weight: 48.5 kg

DRUGS (29)
  1. SEROQUEL [Suspect]
     Indication: DEPRESSION
     Dosage: 200-1200 MG
     Route: 048
     Dates: start: 20020529
  2. SEROQUEL [Suspect]
     Dosage: 200 MG - 900 MG
     Route: 048
     Dates: start: 20020529, end: 20070531
  3. SEROQUEL [Suspect]
     Dosage: 200 MG - 1000 MG
     Route: 048
     Dates: start: 20020613
  4. SEROQUEL [Suspect]
     Dosage: 400 MG 1 TAB AM ,2 TABS PM
     Route: 048
     Dates: start: 20090608
  5. ZYPREXA/SYMBYAX [Concomitant]
     Dates: start: 20010105, end: 20010108
  6. ZYPREXA/SYMBYAX [Concomitant]
     Dates: start: 20050302
  7. GLUCOPHAGE [Concomitant]
  8. ACTOS [Concomitant]
     Dates: start: 20090608
  9. BEXTRA [Concomitant]
  10. EFFEXOR [Concomitant]
  11. COGENTIN [Concomitant]
  12. RESTORIL [Concomitant]
     Dates: start: 20090608
  13. DESYREL [Concomitant]
     Dosage: 50 MG ONE OR TWO HS
     Route: 048
     Dates: start: 19970909
  14. PRANDIN [Concomitant]
  15. LANTUS [Concomitant]
  16. AMBIEN [Concomitant]
  17. BONIVA [Concomitant]
  18. DARVOCET [Concomitant]
  19. VICODIN [Concomitant]
  20. KLONOPIN [Concomitant]
  21. CYMBALTA [Concomitant]
  22. SIMVASTATIN [Concomitant]
  23. XANAX [Concomitant]
     Dates: start: 20090608
  24. ENALAPRIL [Concomitant]
  25. DEPAKOTE [Concomitant]
  26. PAXIL [Concomitant]
     Route: 048
     Dates: start: 19970909
  27. RISPERDAL [Concomitant]
     Route: 048
     Dates: start: 19970909
  28. BUSPAR [Concomitant]
     Route: 048
     Dates: start: 19970909
  29. FOSAMAX [Concomitant]
     Dates: start: 20090608

REACTIONS (14)
  - ALTERED STATE OF CONSCIOUSNESS [None]
  - DIABETIC COMA [None]
  - DIABETIC NEPHROPATHY [None]
  - DIABETIC NEUROPATHY [None]
  - HYPOGLYCAEMIA [None]
  - LEUKOCYTOSIS [None]
  - LOSS OF CONSCIOUSNESS [None]
  - NEUROPATHY PERIPHERAL [None]
  - PANCREATITIS [None]
  - RENAL FAILURE [None]
  - RENAL FAILURE ACUTE [None]
  - RENAL FAILURE CHRONIC [None]
  - TYPE 1 DIABETES MELLITUS [None]
  - TYPE 2 DIABETES MELLITUS [None]
